FAERS Safety Report 4341737-2 (Version None)
Quarter: 2004Q2

REPORT INFORMATION
  Report Type: 
  Country: None (occurrence: None)
  Receive Date: 20040415
  Receipt Date: 20040330
  Transmission Date: 20050107
  Serious: Yes (Hospitalization)
  Sender: FDA-Public Use
  Company Number: FR_040403842

PATIENT
  Age: 82 Year
  Sex: Female

DRUGS (2)
  1. FORSTEO (TERIPARATIDE) [Suspect]
     Indication: OSTEOPOROSIS
     Dosage: 20 UG DAY
     Dates: start: 20040321, end: 20040322
  2. ANTIHYPERTENSIVE [Concomitant]

REACTIONS (1)
  - HYPERTENSION [None]
